FAERS Safety Report 6926507-0 (Version None)
Quarter: 2010Q3

REPORT INFORMATION
  Report Type: 
  Country: None (occurrence: None)
  Receive Date: 20100816
  Receipt Date: 20100806
  Transmission Date: 20110219
  Serious: Yes (Hospitalization)
  Sender: FDA-Public Use
  Company Number: BR-ABBOTT-10P-020-0662346-00

PATIENT
  Sex: Female
  Weight: 34 kg

DRUGS (3)
  1. HUMIRA [Suspect]
     Indication: CROHN'S DISEASE
     Route: 058
     Dates: start: 20100201
  2. PREDNISONE [Concomitant]
     Indication: CROHN'S DISEASE
     Route: 048
  3. PREDNISONE [Concomitant]
     Route: 042
     Dates: start: 20100721, end: 20100730

REACTIONS (3)
  - GASTROINTESTINAL INFLAMMATION [None]
  - PYREXIA [None]
  - WEIGHT DECREASED [None]
